FAERS Safety Report 5508059-5 (Version None)
Quarter: 2007Q4

REPORT INFORMATION
  Report Type: 
  Country: None (occurrence: None)
  Receive Date: 20071106
  Receipt Date: 20071029
  Transmission Date: 20080405
  Serious: Yes (Hospitalization, Disabling)
  Sender: FDA-Public Use
  Company Number: DE-PFIZER INC-2006088247

PATIENT
  Sex: Female
  Weight: 22.9 kg

DRUGS (1)
  1. GENOTROPIN [Suspect]
     Indication: TURNER'S SYNDROME
     Dosage: TEXT:UNKNOWN-FREQ:UNKNOWN
     Route: 065

REACTIONS (1)
  - ADENOIDAL HYPERTROPHY [None]
